FAERS Safety Report 15365403 (Version 1)
Quarter: 2018Q3

REPORT INFORMATION
  Report Type: Spontaneous
  Country: US (occurrence: US)
  Receive Date: 20180910
  Receipt Date: 20180910
  Transmission Date: 20181010
  Serious: Yes (Other)
  Sender: FDA-Public Use
  Company Number: US-PFIZER INC-2018362717

PATIENT
  Age: 56 Year
  Sex: Female
  Weight: 110.66 kg

DRUGS (1)
  1. IBRANCE [Suspect]
     Active Substance: PALBOCICLIB
     Indication: BREAST CANCER FEMALE
     Dosage: 125 MG, CYCLIC [DAY 1?21 Q 28 DAYS]
     Route: 048
     Dates: start: 20180808

REACTIONS (2)
  - Pneumonia [Recovering/Resolving]
  - Dysphonia [Unknown]
